FAERS Safety Report 5162274-1 (Version None)
Quarter: 2006Q4

REPORT INFORMATION
  Report Type: 
  Country: None (occurrence: None)
  Receive Date: 20060919
  Receipt Date: 20060615
  Transmission Date: 20070319
  Serious: No
  Sender: FDA-Public Use
  Company Number: 2006US001363

PATIENT
  Sex: Male

DRUGS (6)
  1. VESICARE [Suspect]
     Indication: BLADDER DISORDER
     Dosage: 5 MG, UID/QD, ORAL
     Route: 048
     Dates: start: 20060601
  2. ALLOPURINOL SODIUM [Concomitant]
  3. ADALAT [Concomitant]
  4. LUPRON [Concomitant]
  5. GABITRIL [Concomitant]
  6. COLCHICINE (COLCHICINE) [Concomitant]

REACTIONS (2)
  - BLOOD PRESSURE DECREASED [None]
  - DIZZINESS [None]
